FAERS Safety Report 10101787 (Version 1)
Quarter: 2014Q2

REPORT INFORMATION
  Report Type: Spontaneous
  Country: US (occurrence: US)
  Receive Date: 20140424
  Receipt Date: 20140424
  Transmission Date: 20141212
  Serious: Yes (Other)
  Sender: FDA-Public Use
  Company Number: US-SA-2014SA050621

PATIENT
  Sex: Male

DRUGS (15)
  1. PLAVIX [Suspect]
     Indication: PRODUCT USED FOR UNKNOWN INDICATION
     Route: 065
  2. ELIQUIS [Suspect]
     Indication: PRODUCT USED FOR UNKNOWN INDICATION
     Route: 065
  3. POTASSIUM CHLORIDE [Concomitant]
  4. CLONIDINE [Concomitant]
  5. TERAZOSIN [Concomitant]
  6. AMLODIPINE [Concomitant]
  7. PRAVASTATIN [Concomitant]
  8. HYDRAZINE [Concomitant]
  9. PACERONE [Concomitant]
  10. METOPROLOL [Concomitant]
  11. RANITIDINE [Concomitant]
  12. ASPIRIN [Concomitant]
  13. FOLIC ACID [Concomitant]
  14. VITAMIN C [Concomitant]
  15. CALCIUM WITH VITAMIN D [Concomitant]

REACTIONS (1)
  - Heart valve replacement [Unknown]
